FAERS Safety Report 21154333 (Version 3)
Quarter: 2022Q4

REPORT INFORMATION
  Report Type: Spontaneous
  Country: JP (occurrence: JP)
  Receive Date: 20220801
  Receipt Date: 20221122
  Transmission Date: 20230113
  Serious: Yes (Death, Other)
  Sender: FDA-Public Use
  Company Number: JP-BRISTOL-MYERS SQUIBB COMPANY-2022-082282

PATIENT
  Age: 84 Year
  Sex: Male
  Weight: 67 kg

DRUGS (2)
  1. YERVOY [Suspect]
     Active Substance: IPILIMUMAB
     Indication: Renal cell carcinoma
     Route: 041
     Dates: start: 20220325, end: 20220325
  2. OPDIVO [Suspect]
     Active Substance: NIVOLUMAB
     Indication: Renal cell carcinoma
     Route: 041
     Dates: start: 20220325, end: 20220325

REACTIONS (7)
  - Cholangitis sclerosing [Fatal]
  - Autoimmune thyroiditis [Not Recovered/Not Resolved]
  - Hepatic encephalopathy [Unknown]
  - Hyperammonaemia [Unknown]
  - Disseminated intravascular coagulation [Unknown]
  - Renal disorder [Unknown]
  - Cytomegalovirus infection [Unknown]

NARRATIVE: CASE EVENT DATE: 20220415
